FAERS Safety Report 20176288 (Version 2)
Quarter: 2021Q4

REPORT INFORMATION
  Report Type: Spontaneous
  Country: US (occurrence: US)
  Receive Date: 20211213
  Receipt Date: 20211231
  Transmission Date: 20220303
  Serious: Yes (Death)
  Sender: FDA-Public Use
  Company Number: US-PFIZER INC-2015083227

PATIENT
  Age: 94 Year
  Sex: Male

DRUGS (17)
  1. LYRICA [Suspect]
     Active Substance: PREGABALIN
     Dosage: UNK (AT 9AM OR BEFORE 10AM)
  2. LYRICA [Suspect]
     Active Substance: PREGABALIN
     Dosage: UNK (AT 6.30 PM)
  3. MELOXICAM [Concomitant]
     Active Substance: MELOXICAM
     Dosage: UNK (AT 9AM OR BEFORE 10AM)
  4. TRAMADOL HCL [Concomitant]
     Active Substance: TRAMADOL HYDROCHLORIDE
     Dosage: UNK (AT 9AM OR BEFORE 10AM)
  5. TRAMADOL HCL [Concomitant]
     Active Substance: TRAMADOL HYDROCHLORIDE
     Dosage: UNK (AT 6.30 PM)
  6. BENAZEPRIL HYDROCHLORIDE [Concomitant]
     Active Substance: BENAZEPRIL HYDROCHLORIDE
     Dosage: UNK (AT 9AM OR BEFORE 10AM)
  7. BENAZEPRIL HYDROCHLORIDE [Concomitant]
     Active Substance: BENAZEPRIL HYDROCHLORIDE
     Dosage: UNK (AT 6.30 PM)
  8. AMLODIPINE BESYLATE [Concomitant]
     Active Substance: AMLODIPINE BESYLATE
     Dosage: UNK (AT 9AM OR BEFORE 10AM)
     Dates: start: 20130210
  9. ASPIRIN [Concomitant]
     Active Substance: ASPIRIN
     Dosage: UNK (AT 9AM OR BEFORE 10AM)
  10. RECLAST [Concomitant]
     Active Substance: ZOLEDRONIC ACID
     Indication: Osteoporosis
     Dosage: A YEAR
  11. CALCIUM PLUS D3 [Concomitant]
     Dosage: CALCIUM 600MG PLUS D3-400IU
  12. TRIPLE OMEGA 3 6 9 [Concomitant]
     Dosage: #-434 MGS/ 6 276 MGS / 9-170MGS
  13. ASCORBIC ACID\VITAMIN B COMPLEX [Concomitant]
     Active Substance: ASCORBIC ACID\VITAMIN B COMPLEX
     Dosage: UNK
  14. VITAMIN D NOS [Concomitant]
     Active Substance: VITAMIN D NOS
     Dosage: 1 EVERY WEEK
  15. VITAMIN D NOS [Concomitant]
     Active Substance: VITAMIN D NOS
     Dosage: 50000 UNITS (PRESCRIPTION) 1 EVERY WEEK
  16. TAMSULOSIN [Concomitant]
     Active Substance: TAMSULOSIN
     Dosage: 1 DF, 1X/DAY
  17. TAMSULOSIN [Concomitant]
     Active Substance: TAMSULOSIN
     Dosage: UNK (AT 6.30 PM)

REACTIONS (1)
  - Renal failure [Fatal]

NARRATIVE: CASE EVENT DATE: 20211203
